FAERS Safety Report 4561921-2 (Version None)
Quarter: 2005Q1

REPORT INFORMATION
  Report Type: 
  Country: None (occurrence: None)
  Receive Date: 20050126
  Receipt Date: 20041230
  Transmission Date: 20050727
  Serious: Yes (Death)
  Sender: FDA-Public Use
  Company Number: LB-MERCK-0501USA01360

PATIENT

DRUGS (3)
  1. CANCIDAS [Suspect]
     Route: 042
  2. DIFLUCAN [Suspect]
     Route: 065
  3. AMPHOTERICIN B [Concomitant]
     Route: 065

REACTIONS (3)
  - DRUG RESISTANCE [None]
  - PATHOGEN RESISTANCE [None]
  - SEPSIS [None]
